FAERS Safety Report 18097365 (Version 2)
Quarter: 2020Q3

REPORT INFORMATION
  Report Type: Spontaneous
  Country: MX (occurrence: MX)
  Receive Date: 20200730
  Receipt Date: 20200829
  Transmission Date: 20201103
  Serious: Yes (Other)
  Sender: FDA-Public Use
  Company Number: NVSC2020MX212652

PATIENT
  Age: 9 Month
  Sex: Female

DRUGS (6)
  1. MEROPENEM. [Concomitant]
     Active Substance: MEROPENEM
     Indication: PRODUCT USED FOR UNKNOWN INDICATION
     Dosage: 40 MG/KG, QD
     Route: 042
     Dates: start: 20190801
  2. CEFTRIAXONE. [Suspect]
     Active Substance: CEFTRIAXONE
     Indication: CNS VENTRICULITIS
     Dosage: UNK
     Route: 065
  3. LINEZOLID. [Suspect]
     Active Substance: LINEZOLID
     Dosage: 10 MG/KG, Q24H
     Route: 016
     Dates: start: 20190806
  4. FLUCONAZOLE. [Concomitant]
     Active Substance: FLUCONAZOLE
     Indication: CANDIDA INFECTION
     Dosage: UNK
     Route: 042
  5. LINEZOLID. [Suspect]
     Active Substance: LINEZOLID
     Indication: PRODUCT USED FOR UNKNOWN INDICATION
     Dosage: 10 MG/KG, QD
     Route: 042
     Dates: start: 20190801
  6. VANCOMYCIN [Suspect]
     Active Substance: VANCOMYCIN
     Indication: CNS VENTRICULITIS
     Dosage: UNK
     Route: 065

REACTIONS (5)
  - Product use in unapproved indication [Unknown]
  - Drug resistance [Unknown]
  - Enterococcal infection [Recovered/Resolved]
  - Drug ineffective [Unknown]
  - Nervous system disorder [Recovering/Resolving]
